FAERS Safety Report 9461168 (Version 1)
Quarter: 2013Q3

REPORT INFORMATION
  Report Type: Spontaneous
  Country: CA (occurrence: CA)
  Receive Date: 20130816
  Receipt Date: 20130816
  Transmission Date: 20140515
  Serious: Yes (Hospitalization, Disabling)
  Sender: FDA-Public Use
  Company Number: CA-ROCHE-1261366

PATIENT
  Age: 34 Year
  Sex: Male

DRUGS (4)
  1. NAPROXEN [Suspect]
     Indication: PRODUCT USED FOR UNKNOWN INDICATION
     Route: 065
  2. TORADOL [Suspect]
     Indication: PRODUCT USED FOR UNKNOWN INDICATION
     Route: 030
  3. IBUPROFEN [Suspect]
     Indication: PRODUCT USED FOR UNKNOWN INDICATION
     Dosage: THERAPY DURATION: 7.0 DAYS
     Route: 048
  4. FORATOL [Concomitant]
     Route: 065

REACTIONS (7)
  - Bilirubin conjugated increased [Unknown]
  - Blood bilirubin increased [Unknown]
  - Blood bilirubin unconjugated [Unknown]
  - Cholelithiasis [Unknown]
  - Hepatic enzyme increased [Unknown]
  - Jaundice [Unknown]
  - Ocular icterus [Unknown]
